FAERS Safety Report 6075798-X (Version None)
Quarter: 2009Q1

REPORT INFORMATION
  Report Type: 
  Country: None (occurrence: None)
  Receive Date: 20090212
  Receipt Date: 20090210
  Transmission Date: 20090719
  Serious: Yes (Life-Threatening, Hospitalization)
  Sender: FDA-Public Use
  Company Number: PHHY2009PL04658

PATIENT
  Sex: Male
  Weight: 70 kg

DRUGS (3)
  1. MYFORTIC [Suspect]
     Dosage: 720 MG/DAY
     Route: 048
     Dates: start: 20081123, end: 20090210
  2. ENCORTON [Concomitant]
     Indication: IMMUNOSUPPRESSION
     Dosage: 35 MG
     Dates: start: 20081123
  3. TACROLIMUS [Concomitant]
     Indication: IMMUNOSUPPRESSION
     Dosage: 5 MG
     Dates: start: 20081123

REACTIONS (8)
  - BODY MASS INDEX DECREASED [None]
  - CYTOMEGALOVIRUS INFECTION [None]
  - DYSPNOEA [None]
  - HYPERKALAEMIA [None]
  - MUCOSAL ULCERATION [None]
  - PYREXIA [None]
  - TACHYCARDIA [None]
  - TYPE 2 DIABETES MELLITUS [None]
